FAERS Safety Report 8882100 (Version 1)
Quarter: 2012Q4

REPORT INFORMATION
  Report Type: 
  Country: CA (occurrence: CA)
  Receive Date: 20121102
  Receipt Date: 20121102
  Transmission Date: 20130627
  Serious: Yes (Other)
  Sender: FDA-Public Use
  Company Number: CA-PFIZER INC-2012226557

PATIENT
  Age: 53 Year
  Sex: Female
  Weight: 78 kg

DRUGS (5)
  1. PRISTIQ [Suspect]
     Indication: DEPRESSION
     Dosage: 100 mg, 1x/day
     Route: 048
     Dates: start: 201112, end: 201209
  2. DULOXETINE [Suspect]
     Indication: DEPRESSION
     Dosage: UNK
  3. BUPROPION [Concomitant]
     Indication: DEPRESSION
     Dosage: 150 mg, UNK
     Route: 048
     Dates: start: 201207
  4. METFORMIN [Concomitant]
     Indication: DIABETES
     Dosage: 500 mg, 2x/day
     Dates: start: 200909
  5. LIRAGLUTIDE (NN2211) [Concomitant]
     Indication: DIABETES
     Dosage: 1.2 mg, daily
     Route: 058
     Dates: start: 201202

REACTIONS (10)
  - Disorientation [Recovered/Resolved]
  - Hyperventilation [Recovered/Resolved]
  - Asthenia [Recovered/Resolved]
  - Paraesthesia [Recovered/Resolved]
  - Withdrawal syndrome [Recovering/Resolving]
  - Dizziness [Recovering/Resolving]
  - Nausea [Recovering/Resolving]
  - Anxiety [Recovering/Resolving]
  - Tremor [Recovering/Resolving]
  - Migraine [Not Recovered/Not Resolved]
